FAERS Safety Report 8793710 (Version 1)
Quarter: 2012Q4

REPORT INFORMATION
  Report Type: 
  Country: US (occurrence: US)
  Receive Date: 20120918
  Receipt Date: 20120918
  Transmission Date: 20130627
  Serious: Yes (Life-Threatening, Hospitalization)
  Sender: FDA-Public Use
  Company Number: US-009507513-1209USA006061

PATIENT

DRUGS (1)
  1. SAPHRIS [Suspect]
     Dosage: 5 mg, qd
     Route: 060

REACTIONS (4)
  - Respiratory disorder [Unknown]
  - Convulsion [Unknown]
  - Musculoskeletal stiffness [Unknown]
  - Dystonia [Unknown]
